FAERS Safety Report 10020033 (Version 3)
Quarter: 2014Q2

REPORT INFORMATION
  Report Type: Spontaneous
  Country: US (occurrence: US)
  Receive Date: 20140318
  Receipt Date: 20140630
  Transmission Date: 20141212
  Serious: Yes (Other)
  Sender: FDA-Public Use
  Company Number: US-ALLERGAN-1404830US

PATIENT
  Age: 89 Year
  Sex: Female
  Weight: 60.32 kg

DRUGS (7)
  1. ALPHAGAN P [Suspect]
     Indication: NORMAL TENSION GLAUCOMA
     Dosage: 1 GTT, BID IN LEFT EYE
     Route: 047
     Dates: start: 20131211, end: 20140310
  2. ARTIFICIAL TEARS                   /00445101/ [Concomitant]
  3. AMLODIPINE BESYLATE [Concomitant]
  4. POTASSIUM [Concomitant]
  5. TRIAMTERENE/HCTZ [Concomitant]
  6. LEVOTHYROXINE [Concomitant]
  7. TYLENOL [Concomitant]
     Dosage: PRN

REACTIONS (5)
  - Mental impairment [Recovered/Resolved]
  - Amnesia [Recovered/Resolved]
  - Anxiety [Not Recovered/Not Resolved]
  - Dysarthria [Not Recovered/Not Resolved]
  - Inappropriate schedule of drug administration [Unknown]
